FAERS Safety Report 6761198-3 (Version None)
Quarter: 2010Q2

REPORT INFORMATION
  Report Type: 
  Country: None (occurrence: None)
  Receive Date: 20100602
  Receipt Date: 20080428
  Transmission Date: 20101027
  Serious: No
  Sender: FDA-Public Use
  Company Number: 2008-00067

PATIENT
  Sex: Female
  Weight: 65.318 kg

DRUGS (1)
  1. ZICAM COLD REMEDY NASAL GEL [Suspect]
     Dosage: 3 DOSES X 1 DAY
     Dates: start: 20080421, end: 20080422

REACTIONS (2)
  - ANOSMIA [None]
  - BURNING SENSATION [None]
